FAERS Safety Report 4307868-8 (Version None)
Quarter: 2004Q1

REPORT INFORMATION
  Report Type: 
  Country: None (occurrence: None)
  Receive Date: 20040225
  Receipt Date: 20030409
  Transmission Date: 20041129
  Serious: Yes (Hospitalization, Other)
  Sender: FDA-Public Use
  Company Number: WAES 0304USA01051

PATIENT
  Age: 70 Year
  Sex: Male
  Weight: 101.6057 kg

DRUGS (9)
  1. ZOCOR [Suspect]
     Indication: HYPERLIPIDAEMIA
     Dosage: DAILY PO
     Route: 048
     Dates: end: 20030325
  2. LOPID [Suspect]
     Dates: start: 20030303, end: 20030325
  3. HYDROCHLOROTHIAZDE TAB [Concomitant]
  4. HYTRIN [Concomitant]
  5. MORPHINA [Concomitant]
  6. PRINIVIL [Concomitant]
  7. QVAR 40 [Concomitant]
  8. TIAZAC [Concomitant]
  9. ASPIRIN [Concomitant]

REACTIONS (7)
  - DRUG INTERACTION [None]
  - GASTROINTESTINAL HAEMORRHAGE [None]
  - HYPERGLYCAEMIA [None]
  - LIVER FUNCTION TEST ABNORMAL [None]
  - MEDICATION ERROR [None]
  - MYOPATHY [None]
  - RHABDOMYOLYSIS [None]
